FAERS Safety Report 5943037-3 (Version None)
Quarter: 2008Q4

REPORT INFORMATION
  Report Type: 
  Country: None (occurrence: None)
  Receive Date: 20081103
  Receipt Date: 20081021
  Transmission Date: 20090506
  Serious: Yes (Other)
  Sender: FDA-Public Use
  Company Number: 2008US002629

PATIENT
  Age: 75 Year
  Sex: Female

DRUGS (13)
  1. LEXISCAN [Suspect]
     Indication: SCAN MYOCARDIAL PERFUSION
     Dosage: 0.4 MG, UNK, IV NOS
     Route: 042
     Dates: start: 20080926, end: 20080926
  2. GLUCOSAMINE (GLUCOSAMINE) [Concomitant]
  3. FOLIC ACID [Concomitant]
  4. MULTIVITAMIN (ASCORBIC ACID) [Concomitant]
  5. ALBUTEROL (SALBUTAMOL SULFATE) [Concomitant]
  6. PULMICORT-100 [Concomitant]
  7. MAXZIDE [Concomitant]
  8. CALCIUM (ASCORBIC ACID) [Concomitant]
  9. HUMIBID (GUAIFENESIN) [Concomitant]
  10. ZOCOR [Concomitant]
  11. LEXAPRO [Concomitant]
  12. XANAX [Concomitant]
  13. METOPROLOL TARTRATE [Concomitant]

REACTIONS (2)
  - CHEST DISCOMFORT [None]
  - MUSCLE TIGHTNESS [None]
